FAERS Safety Report 9220597 (Version 2)
Quarter: 2013Q2

REPORT INFORMATION
  Report Type: Spontaneous
  Country: US (occurrence: US)
  Receive Date: 20130409
  Receipt Date: 20130517
  Transmission Date: 20140414
  Serious: Yes (Hospitalization)
  Sender: FDA-Public Use
  Company Number: US-VERTEX PHARMACEUTICALS INC.-2013-004553

PATIENT
  Age: 49 Year
  Sex: Female
  Weight: 85 kg

DRUGS (11)
  1. INCIVEK [Suspect]
     Indication: HEPATITIS C
     Dosage: UNK
     Route: 048
     Dates: start: 20130115, end: 20130405
  2. RIBAVIRIN [Suspect]
     Indication: HEPATITIS C
     Dosage: UNK
     Dates: start: 20130115
  3. PEGINTERFERON [Suspect]
     Indication: HEPATITIS C
     Dosage: UNK
     Dates: start: 20130115
  4. NYSTATIN [Concomitant]
     Dosage: UNK
     Route: 048
     Dates: start: 20130319
  5. LIDO [Concomitant]
  6. VITAMIN B12 [Concomitant]
     Dosage: 1000 ?G, SC
     Dates: start: 20130319
  7. VITAMIN E [Concomitant]
     Dosage: UNK
     Dates: start: 20130319
  8. VITAMIN C [Concomitant]
     Dosage: 500 MG, QD
     Dates: start: 20130319
  9. FOLIC ACID [Concomitant]
     Dosage: 1 MG, QD
     Dates: start: 20130319
  10. IRON [Concomitant]
     Dosage: 45 MG, QD
     Dates: start: 20130319
  11. POTASSIUM [Concomitant]
     Dosage: 10 MG, UNK
     Dates: start: 20130327

REACTIONS (2)
  - Cellulitis [Not Recovered/Not Resolved]
  - Stevens-Johnson syndrome [Recovered/Resolved]
